FAERS Safety Report 4308839-8 (Version None)
Quarter: 2004Q1

REPORT INFORMATION
  Report Type: 
  Country: None (occurrence: None)
  Receive Date: 20040227
  Receipt Date: 20040216
  Transmission Date: 20041129
  Serious: No
  Sender: FDA-Public Use
  Company Number: 04P-167-0250593-00

PATIENT
  Age: 65 Year
  Sex: Female
  Weight: 35 kg

DRUGS (7)
  1. HUMIRA [Suspect]
     Indication: RHEUMATOID ARTHRITIS
     Dosage: 40 MG, SUBCUTANEOUS
     Route: 058
     Dates: start: 20030528
  2. HUMIRA [Suspect]
     Indication: RHEUMATOID ARTHRITIS
     Dosage: 40 MG, SUBCUTANEOUS
     Route: 058
     Dates: start: 20040204
  3. PREMARIN PLUS [Concomitant]
  4. FOLIC ACID [Concomitant]
  5. LANSOPRAZOLE [Concomitant]
  6. METHOTREXATE [Concomitant]
  7. ROFECOXIB [Concomitant]

REACTIONS (6)
  - ABDOMINAL DISCOMFORT [None]
  - INJECTION SITE REACTION [None]
  - PRURITUS [None]
  - RASH [None]
  - SWELLING FACE [None]
  - VOMITING [None]
